FAERS Safety Report 21734634 (Version 2)
Quarter: 2023Q1

REPORT INFORMATION
  Report Type: Spontaneous
  Country: SE (occurrence: SE)
  Receive Date: 20221215
  Receipt Date: 20230213
  Transmission Date: 20230417
  Serious: Yes (Other)
  Sender: FDA-Public Use
  Company Number: SE-SANOFI-01400391

PATIENT
  Age: 84 Year
  Sex: Female

DRUGS (9)
  1. MULTAQ [Suspect]
     Active Substance: DRONEDARONE
     Dosage: 400 MG
     Dates: start: 20220930
  2. OXYCODONE HYDROCHLORIDE [Concomitant]
     Active Substance: OXYCODONE HYDROCHLORIDE
  3. BACTRIM [Concomitant]
     Active Substance: SULFAMETHOXAZOLE\TRIMETHOPRIM
  4. CIPROFLOXACIN [Concomitant]
     Active Substance: CIPROFLOXACIN
  5. FURADANTIN [Concomitant]
     Active Substance: NITROFURANTOIN
  6. METOPROLOL [Concomitant]
     Active Substance: METOPROLOL
     Dosage: 25MG QD
  7. ELIQUIS [Concomitant]
     Active Substance: APIXABAN
  8. IMOVANE [Concomitant]
     Active Substance: ZOPICLONE
  9. ACETAMINOPHEN [Concomitant]
     Active Substance: ACETAMINOPHEN

REACTIONS (13)
  - Loss of consciousness [Unknown]
  - Confusional state [Unknown]
  - Fall [Unknown]
  - Nocturia [Unknown]
  - Presyncope [Not Recovered/Not Resolved]
  - Head injury [Not Recovered/Not Resolved]
  - Urine output decreased [Not Recovered/Not Resolved]
  - Condition aggravated [Not Recovered/Not Resolved]
  - Nausea [Not Recovered/Not Resolved]
  - Chromaturia [Unknown]
  - Diarrhoea [Unknown]
  - Abdominal pain [Unknown]
  - Contraindicated product administered [Unknown]
